FAERS Safety Report 24340141 (Version 4)
Quarter: 2025Q4

REPORT INFORMATION
  Report Type: Report from Study
  Country: CA (occurrence: CA)
  Receive Date: 20240919
  Receipt Date: 20251103
  Transmission Date: 20260117
  Serious: Yes (Death, Other)
  Sender: GLAXOSMITHKLINE
  Company Number: CA-GLAXOSMITHKLINE-CA2024067103

PATIENT
  Age: 81 Year
  Sex: Male

DRUGS (3)
  1. MEPOLIZUMAB [Suspect]
     Active Substance: MEPOLIZUMAB
     Indication: Nasal polyps
     Dosage: 100 MG, Q4W
  2. MEPOLIZUMAB [Suspect]
     Active Substance: MEPOLIZUMAB
     Indication: Asthma
  3. MOMETASONE [Concomitant]
     Active Substance: MOMETASONE
     Indication: Product used for unknown indication
     Dosage: UNK

REACTIONS (10)
  - Lung carcinoma cell type unspecified stage IV [Fatal]
  - Pulmonary congestion [Unknown]
  - Nasal polyps [Recovered/Resolved]
  - Condition aggravated [Recovered/Resolved]
  - Metastases to liver [Unknown]
  - Metastases to central nervous system [Unknown]
  - Metastases to bone [Unknown]
  - Nasal inflammation [Unknown]
  - Drug ineffective [Unknown]
  - Product dose omission issue [Unknown]

NARRATIVE: CASE EVENT DATE: 20240603
